FAERS Safety Report 9239926 (Version 1)
Quarter: 2013Q2

REPORT INFORMATION
  Report Type: Spontaneous
  Country: US (occurrence: US)
  Receive Date: 20130418
  Receipt Date: 20130418
  Transmission Date: 20140414
  Serious: No
  Sender: FDA-Public Use
  Company Number: US-PFIZER INC-2013122447

PATIENT
  Age: 56 Year
  Sex: Female
  Weight: 66.21 kg

DRUGS (15)
  1. LYRICA [Suspect]
     Indication: FIBROMYALGIA
     Dosage: 100 MG, 3X/DAY
  2. LYRICA [Suspect]
     Dosage: 100 MG, 2X/DAY
     Dates: start: 2012
  3. SKELAXIN [Suspect]
     Indication: FIBROMYALGIA
     Dosage: 100 MG, AS NEEDED EVERY 6 HOURS
  4. SKELAXIN [Suspect]
     Indication: BACK PAIN
  5. SKELAXIN [Suspect]
     Indication: INTERVERTEBRAL DISC DEGENERATION
  6. ZOLOFT [Concomitant]
     Indication: DEPRESSION
     Dosage: 200 MG, 1X/DAY
  7. VYTORIN [Concomitant]
     Indication: BLOOD CHOLESTEROL INCREASED
     Dosage: 20 MG, 1X/DAY
  8. TRILIPIX [Concomitant]
     Indication: BLOOD CHOLESTEROL INCREASED
     Dosage: 135 MG, 1X/DAY
  9. VOLTAREN [Concomitant]
     Indication: OSTEOARTHRITIS
     Dosage: 75 MG, 2X/DAY
  10. ATENOLOL [Concomitant]
     Indication: HYPERTENSION
     Dosage: 25 MG, 2X/DAY
  11. DIGOXIN [Concomitant]
     Indication: HEART RATE IRREGULAR
     Dosage: 125 UG, 1X/DAY
  12. ELMIRON [Concomitant]
     Indication: CYSTITIS INTERSTITIAL
     Dosage: 100 MG, 2X/DAY
  13. ACIPHEX [Concomitant]
     Indication: GASTROOESOPHAGEAL REFLUX DISEASE
     Dosage: 20 MG, UNK
  14. BENTYL [Concomitant]
     Indication: IRRITABLE BOWEL SYNDROME
     Dosage: 10 MG, AS NEEDED
  15. VIVELLE [Concomitant]
     Indication: HYSTERECTOMY
     Dosage: 0.1 MG, 2X/WEEK
     Route: 062

REACTIONS (2)
  - Somnolence [Unknown]
  - Intentional drug misuse [Unknown]
